FAERS Safety Report 8194469-7 (Version None)
Quarter: 2012Q1

REPORT INFORMATION
  Report Type: 
  Country: None (occurrence: None)
  Receive Date: 20120308
  Receipt Date: 20110302
  Transmission Date: 20120608
  Serious: No
  Sender: FDA-Public Use
  Company Number: US-GLAXOSMITHKLINE-A0916287A

PATIENT
  Age: 57 Year
  Sex: Male

DRUGS (1)
  1. NICORETTE [Suspect]
     Indication: EX-TOBACCO USER
     Dates: start: 20110217, end: 20110301

REACTIONS (6)
  - GLOSSITIS [None]
  - FEELING HOT [None]
  - NONSPECIFIC REACTION [None]
  - SWOLLEN TONGUE [None]
  - ORAL PAIN [None]
  - GLOSSODYNIA [None]
